FAERS Safety Report 7038210-X (Version None)
Quarter: 2010Q4

REPORT INFORMATION
  Report Type: 
  Country: None (occurrence: None)
  Receive Date: 20101011
  Receipt Date: 20100928
  Transmission Date: 20110411
  Serious: Yes (Hospitalization)
  Sender: FDA-Public Use
  Company Number: FR-MYLANLABS-2010S1017669

PATIENT
  Age: 49 Year
  Sex: Male

DRUGS (6)
  1. OMEPRAZOLE [Suspect]
     Indication: GASTROENTERITIS
     Route: 048
     Dates: start: 20100823, end: 20100828
  2. TAREG [Suspect]
     Indication: HYPERTENSION
     Route: 048
     Dates: start: 20100823, end: 20100828
  3. VOLTAREN [Suspect]
     Indication: BACK PAIN
     Route: 048
     Dates: start: 20100823, end: 20100828
  4. VOGALENE LYOC [Suspect]
     Indication: GASTROENTERITIS
     Route: 048
     Dates: start: 20100823, end: 20100828
  5. EFFERALGAN [Suspect]
     Indication: GASTROENTERITIS
     Route: 048
     Dates: start: 20100823, end: 20100828
  6. TIORFAN [Concomitant]
     Indication: PRODUCT USED FOR UNKNOWN INDICATION

REACTIONS (2)
  - PRESYNCOPE [None]
  - RENAL FAILURE ACUTE [None]
